FAERS Safety Report 9897077 (Version 1)
Quarter: 2014Q1

REPORT INFORMATION
  Report Type: Spontaneous
  Country: US (occurrence: US)
  Receive Date: 20140214
  Receipt Date: 20140214
  Transmission Date: 20141002
  Serious: No
  Sender: FDA-Public Use
  Company Number: US-BIOGENIDEC-2014BI014827

PATIENT
  Age: 72 Year
  Sex: Female

DRUGS (11)
  1. AVONEX [Suspect]
     Indication: MULTIPLE SCLEROSIS
     Route: 030
     Dates: start: 20070402
  2. ACTONEL [Concomitant]
  3. BENTYL [Concomitant]
  4. CLONAZEPAM ODT [Concomitant]
  5. CRESTOR [Concomitant]
  6. HYOSCYAMINE [Concomitant]
  7. METOCLOPRAMIDE HCL [Concomitant]
  8. OMEPRAZOLE [Concomitant]
  9. REGLAN [Concomitant]
  10. ZOLOFT [Concomitant]
  11. ZYRTEC [Concomitant]

REACTIONS (1)
  - Influenza [Unknown]
